FAERS Safety Report 21043256 (Version 1)
Quarter: 2022Q3

REPORT INFORMATION
  Report Type: Report from Study
  Country: US (occurrence: US)
  Receive Date: 20220705
  Receipt Date: 20220705
  Transmission Date: 20221026
  Serious: Yes (Hospitalization)
  Sender: FDA-Public Use
  Company Number: US-EXELIXIS-CABO-22053440

PATIENT
  Sex: Male
  Weight: 72 kg

DRUGS (7)
  1. CABOMETYX [Suspect]
     Active Substance: CABOZANTINIB S-MALATE
     Indication: Renal cell carcinoma
     Dosage: 20 MG, QD
     Route: 048
     Dates: start: 20220502
  2. PROCRIT [Concomitant]
     Active Substance: ERYTHROPOIETIN
  3. PREDNISONE [Concomitant]
     Active Substance: PREDNISONE
  4. CLARITIN [Concomitant]
     Active Substance: LORATADINE
  5. VITAMINS [Concomitant]
     Active Substance: VITAMINS
  6. TYLENOL [Concomitant]
     Active Substance: ACETAMINOPHEN
  7. ZYRTEC [Concomitant]
     Active Substance: CETIRIZINE HYDROCHLORIDE

REACTIONS (3)
  - Ascites [Recovering/Resolving]
  - Adverse drug reaction [Recovering/Resolving]
  - Drug ineffective [Unknown]
